FAERS Safety Report 23484697 (Version 2)
Quarter: 2024Q2

REPORT INFORMATION
  Report Type: Spontaneous
  Country: US (occurrence: US)
  Receive Date: 20240206
  Receipt Date: 20240627
  Transmission Date: 20240716
  Serious: Yes (Congenital Anomaly, Other)
  Sender: FDA-Public Use
  Company Number: US-CIPLA LTD.-2024US01226

PATIENT

DRUGS (2)
  1. ZIDOVUDINE [Suspect]
     Active Substance: ZIDOVUDINE
     Dosage: UNK (COURSE 1)
     Route: 064
  2. EMTRICITABINE\TENOFOVIR [Suspect]
     Active Substance: EMTRICITABINE\TENOFOVIR
     Dosage: UNK (COURSE 1)
     Route: 064

REACTIONS (2)
  - Cryptorchism [Unknown]
  - Foetal exposure during pregnancy [Unknown]
